FAERS Safety Report 11643109 (Version 2)
Quarter: 2015Q4

REPORT INFORMATION
  Report Type: Spontaneous
  Country: US (occurrence: US)
  Receive Date: 20151020
  Receipt Date: 20151102
  Transmission Date: 20160304
  Serious: Yes (Hospitalization)
  Sender: FDA-Public Use
  Company Number: US-PAR PHARMACEUTICAL COMPANIES-2015SCPR014400

PATIENT

DRUGS (1)
  1. BUPROPION HCL XL TABLETS [Suspect]
     Active Substance: BUPROPION HYDROCHLORIDE
     Dosage: UNK UNK, UNKNOWN
     Route: 065

REACTIONS (5)
  - Accidental exposure to product by child [Unknown]
  - No adverse event [Unknown]
  - Product quality issue [Unknown]
  - Failure of child resistant mechanism for pharmaceutical product [None]
  - Product substitution issue [None]

NARRATIVE: CASE EVENT DATE: 20151009
